FAERS Safety Report 4701081-8 (Version None)
Quarter: 2005Q2

REPORT INFORMATION
  Report Type: 
  Country: None (occurrence: None)
  Receive Date: 20050624
  Receipt Date: 20050607
  Transmission Date: 20051028
  Serious: Yes (Other)
  Sender: FDA-Public Use
  Company Number: USA050699933

PATIENT
  Age: 56 Year
  Sex: Male

DRUGS (2)
  1. FORTEO [Suspect]
  2. VITAMIN D [Concomitant]

REACTIONS (3)
  - ACCIDENT AT WORK [None]
  - CHRONIC OBSTRUCTIVE PULMONARY DISEASE [None]
  - MULTIPLE FRACTURES [None]
